FAERS Safety Report 5886447-5 (Version None)
Quarter: 2008Q3

REPORT INFORMATION
  Report Type: 
  Country: None (occurrence: None)
  Receive Date: 20080917
  Receipt Date: 20080606
  Transmission Date: 20090109
  Serious: Yes (Other)
  Sender: FDA-Public Use
  Company Number: US-JNJFOC-20080604022

PATIENT
  Sex: Female
  Weight: 74.84 kg

DRUGS (7)
  1. ULTRAM [Suspect]
     Indication: BREAKTHROUGH PAIN
     Route: 048
  2. VICODIN [Concomitant]
     Indication: PAIN
     Route: 048
  3. BENTYL [Concomitant]
     Indication: DYSPEPSIA
     Route: 048
  4. PREVACID [Concomitant]
     Indication: GASTROOESOPHAGEAL REFLUX DISEASE
     Route: 048
  5. SINGULAIR [Concomitant]
     Indication: ASTHMA
     Route: 048
  6. TRICOR [Concomitant]
     Indication: BLOOD CHOLESTEROL INCREASED
     Route: 048
  7. TRAZODONE HCL [Concomitant]
     Indication: SLEEP DISORDER
     Route: 048

REACTIONS (4)
  - CARDIAC DISORDER [None]
  - GASTRIC DISORDER [None]
  - HYPERTENSION [None]
  - MUSCULOSKELETAL PAIN [None]
